FAERS Safety Report 10005896 (Version 4)
Quarter: 2014Q2

REPORT INFORMATION
  Report Type: Spontaneous
  Country: JP (occurrence: JP)
  Receive Date: 20140313
  Receipt Date: 20140614
  Transmission Date: 20141212
  Serious: Yes (Hospitalization)
  Sender: FDA-Public Use
  Company Number: JP-AMGEN-JPNSP2013091891

PATIENT
  Age: 72 Year
  Sex: Female
  Weight: 45 kg

DRUGS (11)
  1. RANMARK [Suspect]
     Indication: METASTASES TO BONE
     Dosage: 120 MG, UNK
     Route: 058
     Dates: start: 20120420
  2. RANMARK [Suspect]
     Indication: BREAST CANCER
  3. TULOBUTEROL [Concomitant]
     Indication: BRONCHITIS CHRONIC
     Dosage: 1 MG, QD
     Route: 062
     Dates: start: 20100225
  4. ALDACTONE                          /00006201/ [Concomitant]
     Indication: CARDIAC FAILURE CHRONIC
     Dosage: 25 MG, QD
     Route: 048
     Dates: start: 20100225
  5. LASIX                              /00032601/ [Concomitant]
     Indication: CARDIAC FAILURE CHRONIC
     Dosage: 40 MG, QD
     Route: 048
     Dates: start: 20100225
  6. MAGMITT [Concomitant]
     Indication: ABDOMINAL DISCOMFORT
     Dosage: ONCE:330
     Route: 048
     Dates: start: 20100225
  7. FEMARA [Concomitant]
     Indication: MENOPAUSE
     Dosage: ONCE:2.5
     Route: 048
     Dates: start: 20120331
  8. FEMARA [Concomitant]
     Indication: BREAST CANCER
  9. ATARAX-P                           /00058402/ [Concomitant]
     Dosage: 25 MG, QD
  10. PANVITAN                           /05664201/ [Concomitant]
     Dosage: UNK
     Route: 048
  11. PANVITAN [Concomitant]
     Route: 048

REACTIONS (2)
  - Hyperglycaemia [Recovered/Resolved]
  - Blood glucose abnormal [Recovered/Resolved]
